FAERS Safety Report 4705142-9 (Version None)
Quarter: 2005Q3

REPORT INFORMATION
  Report Type: 
  Country: None (occurrence: None)
  Receive Date: 20050701
  Receipt Date: 20050629
  Transmission Date: 20060218
  Serious: Yes (Hospitalization)
  Sender: FDA-Public Use
  Company Number: PHBS2005NL09304

PATIENT
  Age: 49 Year
  Sex: Female

DRUGS (6)
  1. LITHIUM [Concomitant]
     Dosage: 800 MG, QD
     Dates: start: 20040101
  2. CLONAZEPAM [Concomitant]
     Dosage: 0.5 MG, BID
     Dates: start: 19990301
  3. AMITRIPTYLINE HCL [Concomitant]
     Dosage: 75 MG, TID
     Dates: start: 19980101
  4. TEMAZEPAM [Concomitant]
  5. PANTOPRAZOLE [Concomitant]
  6. LEPONEX [Suspect]
     Indication: BIPOLAR DISORDER
     Dosage: 500 MG/D
     Route: 048
     Dates: start: 20040101, end: 20050607

REACTIONS (4)
  - AGRANULOCYTOSIS [None]
  - CANDIDIASIS [None]
  - NEUTROPENIA [None]
  - RESPIRATORY TRACT INFECTION [None]
